FAERS Safety Report 7150243-1 (Version None)
Quarter: 2010Q4

REPORT INFORMATION
  Report Type: 
  Country: None (occurrence: None)
  Receive Date: 20101126
  Receipt Date: 20101116
  Transmission Date: 20110411
  Serious: Yes (Hospitalization, Other)
  Sender: FDA-Public Use
  Company Number: 2010GW000917

PATIENT
  Age: 67 Year
  Sex: Female
  Weight: 102.903 kg

DRUGS (5)
  1. TAMBOCOR [Suspect]
     Indication: ARRHYTHMIA
     Dosage: 100 MG;BID;PO, 200 MG;BID;PO
     Route: 048
     Dates: end: 20101114
  2. TAMBOCOR [Suspect]
     Indication: ARRHYTHMIA
     Dosage: 100 MG;BID;PO, 200 MG;BID;PO
     Route: 048
     Dates: start: 20101114
  3. COUMADIN [Suspect]
     Indication: ARRHYTHMIA
     Dosage: 3 MG;5XW;PO
     Route: 048
  4. VYTORIN [Suspect]
     Indication: HYPERCHOLESTEROLAEMIA
     Dosage: 10 MG;QD;PO
     Route: 048
  5. TOPROL-XL [Suspect]
     Indication: ARRHYTHMIA
     Dosage: 25 MG;QD;PO
     Route: 048

REACTIONS (9)
  - ARRHYTHMIA [None]
  - BREAST CANCER FEMALE [None]
  - BREAST CELLULITIS [None]
  - CONSTIPATION [None]
  - COOMBS POSITIVE HAEMOLYTIC ANAEMIA [None]
  - HYPERGLYCAEMIA [None]
  - OESTROGEN RECEPTOR ASSAY POSITIVE [None]
  - PROGESTERONE RECEPTOR ASSAY POSITIVE [None]
  - PYURIA [None]
